FAERS Safety Report 8162484-5 (Version None)
Quarter: 2012Q1

REPORT INFORMATION
  Report Type: 
  Country: None (occurrence: None)
  Receive Date: 20120224
  Receipt Date: 20120224
  Transmission Date: 20120608
  Serious: Yes (Life-Threatening)
  Sender: FDA-Public Use
  Company Number: None

PATIENT
  Age: 88 Year
  Sex: Female
  Weight: 68.6 kg

DRUGS (1)
  1. TICAGRELOR [Suspect]
     Dosage: 180 MG
     Route: 048
     Dates: start: 20111221, end: 20111222

REACTIONS (3)
  - BLOOD PRESSURE DECREASED [None]
  - CARDIAC ARREST [None]
  - HEART RATE DECREASED [None]
